FAERS Safety Report 8184260-X (Version None)
Quarter: 2012Q1

REPORT INFORMATION
  Report Type: 
  Country: None (occurrence: None)
  Receive Date: 20120305
  Receipt Date: 20120228
  Transmission Date: 20120608
  Serious: Yes (Hospitalization, Other)
  Sender: FDA-Public Use
  Company Number: US-B.I. PHARMACEUTICALS,INC./RIDGEFIELD-2012-BP-02736BP

PATIENT
  Age: 53 Year
  Sex: Male

DRUGS (6)
  1. AMIODARONE HCL [Concomitant]
  2. DIGOXIN [Concomitant]
  3. ENALAPRIL MALEATE [Concomitant]
     Dosage: 10 MG
  4. FUROSEMIDE [Concomitant]
     Dosage: 20 MG
  5. METOPROLOL SUCCINATE [Concomitant]
  6. PRADAXA [Suspect]
     Dosage: 300 MG
     Route: 048

REACTIONS (1)
  - DEEP VEIN THROMBOSIS [None]
